FAERS Safety Report 21344441 (Version 1)
Quarter: 2022Q3

REPORT INFORMATION
  Report Type: Spontaneous
  Country: US (occurrence: None)
  Receive Date: 20220916
  Receipt Date: 20220916
  Transmission Date: 20221027
  Serious: Yes (Life-Threatening)
  Sender: FDA-Public Use
  Company Number: None

PATIENT
  Age: 15 Year
  Sex: Female

DRUGS (2)
  1. CANNABIDIOL\HERBALS\TETRAHYDROCANNABINOL UNSPECIFIED [Suspect]
     Active Substance: CANNABIDIOL\HERBALS\TETRAHYDROCANNABINOL UNSPECIFIED
  2. NICOTINE [Suspect]
     Active Substance: NICOTINE

REACTIONS (3)
  - Loss of consciousness [None]
  - Nausea [None]
  - Tachycardia [None]
